FAERS Safety Report 6013929-8 (Version None)
Quarter: 2008Q4

REPORT INFORMATION
  Report Type: 
  Country: None (occurrence: None)
  Receive Date: 20081219
  Receipt Date: 20081211
  Transmission Date: 20090506
  Serious: Yes (Life-Threatening, Disabling)
  Sender: FDA-Public Use
  Company Number: US-MERCK-0812USA02585

PATIENT
  Age: 40 Year
  Sex: Female

DRUGS (1)
  1. HYZAAR [Suspect]
     Indication: HYPERTENSION
     Route: 048
     Dates: start: 20081101, end: 20081101

REACTIONS (3)
  - PHARYNGEAL OEDEMA [None]
  - RESPIRATORY DISORDER [None]
  - SWELLING FACE [None]
